FAERS Safety Report 25149147 (Version 1)
Quarter: 2025Q2

REPORT INFORMATION
  Report Type: Spontaneous
  Country: US (occurrence: US)
  Receive Date: 20250402
  Receipt Date: 20250402
  Transmission Date: 20250717
  Serious: No
  Sender: JOHNSON AND JOHNSON
  Company Number: US-JNJFOC-20250276416

PATIENT
  Sex: Male

DRUGS (6)
  1. TOPAMAX [Suspect]
     Active Substance: TOPIRAMATE
     Indication: Product used for unknown indication
     Route: 048
  2. ERIVEDGE [Concomitant]
     Active Substance: VISMODEGIB
  3. BUPROPION [Concomitant]
     Active Substance: BUPROPION
  4. APIXABAN [Concomitant]
     Active Substance: APIXABAN
  5. AMLODIPINE [Concomitant]
     Active Substance: AMLODIPINE BESYLATE
  6. AMIODARONE [Concomitant]
     Active Substance: AMIODARONE

REACTIONS (1)
  - Rash [Unknown]
